FAERS Safety Report 10562983 (Version 3)
Quarter: 2014Q4

REPORT INFORMATION
  Report Type: Spontaneous
  Country: US (occurrence: US)
  Receive Date: 20141104
  Receipt Date: 20141126
  Transmission Date: 20150529
  Serious: Yes (Hospitalization, Other)
  Sender: FDA-Public Use
  Company Number: US-UNITED THERAPEUTICS-UNT-2014-008984

PATIENT
  Age: 57 Year
  Sex: Female
  Weight: 50.79 kg

DRUGS (1)
  1. REMODULIN [Suspect]
     Active Substance: TREPROSTINIL
     Indication: COR PULMONALE CHRONIC
     Dosage: 0.195 ?G/KG, CONTINUING
     Route: 041
     Dates: start: 20130630, end: 20141008

REACTIONS (10)
  - Catheter site discharge [Recovered/Resolved]
  - Hepatic cirrhosis [Not Recovered/Not Resolved]
  - Pericardial effusion [Unknown]
  - Localised oedema [Recovering/Resolving]
  - Staphylococcal bacteraemia [Unknown]
  - Sepsis [Recovering/Resolving]
  - Cardiac tamponade [Not Recovered/Not Resolved]
  - Thrombocytopenia [Not Recovered/Not Resolved]
  - Ascites [Not Recovered/Not Resolved]
  - Pulmonary embolism [Unknown]

NARRATIVE: CASE EVENT DATE: 201409
